FAERS Safety Report 6222922-1 (Version None)
Quarter: 2009Q2

REPORT INFORMATION
  Report Type: 
  Country: None (occurrence: None)
  Receive Date: 20090609
  Receipt Date: 20090602
  Transmission Date: 20091009
  Serious: Yes (Other)
  Sender: FDA-Public Use
  Company Number: POMP-1000289

PATIENT
  Age: 6 Year
  Sex: Female
  Weight: 18.8 kg

DRUGS (1)
  1. MYOZYME [Suspect]
     Indication: GLYCOGEN STORAGE DISEASE TYPE II
     Dosage: 20 MG/KG, Q2W, INTRAVENOUS
     Route: 042
     Dates: start: 20081116

REACTIONS (13)
  - ABDOMINAL PAIN [None]
  - ANTIBODY TEST POSITIVE [None]
  - ASTHENIA [None]
  - DEVELOPMENTAL DELAY [None]
  - DIARRHOEA [None]
  - DISEASE PROGRESSION [None]
  - ENZYME INHIBITION [None]
  - FACE OEDEMA [None]
  - IRRITABILITY [None]
  - MYOPATHY [None]
  - NO THERAPEUTIC RESPONSE [None]
  - URTICARIA [None]
  - VOMITING [None]
